FAERS Safety Report 6158771-2 (Version None)
Quarter: 2009Q2

REPORT INFORMATION
  Report Type: 
  Country: None (occurrence: None)
  Receive Date: 20090417
  Receipt Date: 20090413
  Transmission Date: 20091009
  Serious: Yes (Other)
  Sender: FDA-Public Use
  Company Number: B0570031A

PATIENT
  Age: 29 Year
  Sex: Male

DRUGS (1)
  1. BUPROPION HCL [Suspect]
     Dosage: 150MG PER DAY

REACTIONS (4)
  - ERYTHEMA MULTIFORME [None]
  - HEADACHE [None]
  - MALAISE [None]
  - PYREXIA [None]
